FAERS Safety Report 11613923 (Version 1)
Quarter: 2015Q4

REPORT INFORMATION
  Report Type: Spontaneous
  Country: US (occurrence: US)
  Receive Date: 20151008
  Receipt Date: 20151008
  Transmission Date: 20160304
  Serious: No
  Sender: FDA-Public Use
  Company Number: US-B.I. PHARMACEUTICALS,INC./RIDGEFIELD-2015-BI-35966BP

PATIENT
  Age: 84 Year
  Sex: Female
  Weight: 75.75 kg

DRUGS (9)
  1. COPPER [Concomitant]
     Active Substance: COPPER
     Dosage: 5 MG
     Route: 048
  2. VITAMIN C [Concomitant]
     Active Substance: ASCORBIC ACID
     Indication: VITAMIN SUPPLEMENTATION
     Dosage: 500 MG
     Route: 048
     Dates: start: 1950
  3. VITAMIN B12 [Concomitant]
     Active Substance: CYANOCOBALAMIN
     Indication: VITAMIN SUPPLEMENTATION
     Dosage: 500 MG
     Route: 048
     Dates: start: 2002
  4. OFEV [Suspect]
     Active Substance: NINTEDANIB
     Indication: IDIOPATHIC PULMONARY FIBROSIS
     Dosage: 300 MG
     Route: 048
     Dates: start: 20150501
  5. COPPER [Concomitant]
     Active Substance: COPPER
     Indication: MACULAR DEGENERATION
     Dosage: 2 MG
     Route: 048
     Dates: start: 2014
  6. ZINC [Concomitant]
     Active Substance: ZINC\ZINC CHLORIDE
     Indication: MACULAR DEGENERATION
     Dosage: 50 MG
     Route: 048
     Dates: start: 2014
  7. GLYBURIDE. [Concomitant]
     Active Substance: GLYBURIDE
     Indication: DIABETES MELLITUS
     Dosage: 5 MG
     Route: 048
     Dates: start: 1995
  8. HYDROCHLOROTHIAZIDE. [Concomitant]
     Active Substance: HYDROCHLOROTHIAZIDE
     Indication: HYPERTENSION
     Dosage: 25 MG
     Route: 048
     Dates: start: 1995
  9. METFORMIN [Concomitant]
     Active Substance: METFORMIN HYDROCHLORIDE
     Indication: DIABETES MELLITUS
     Dosage: 1000 MG
     Route: 048
     Dates: start: 1995

REACTIONS (2)
  - Dyspepsia [Not Recovered/Not Resolved]
  - Diarrhoea [Not Recovered/Not Resolved]

NARRATIVE: CASE EVENT DATE: 201505
